FAERS Safety Report 4459012-4 (Version None)
Quarter: 2004Q3

REPORT INFORMATION
  Report Type: 
  Country: None (occurrence: None)
  Receive Date: 20040923
  Receipt Date: 20040923
  Transmission Date: 20050211
  Serious: No
  Sender: FDA-Public Use
  Company Number: None

PATIENT
  Sex: Female
  Weight: 62.5964 kg

DRUGS (2)
  1. OXYCONTIN [Suspect]
     Indication: BACK PAIN
     Dosage: 80 MG PO Q 6HR
     Route: 048
  2. OXYCONTIN [Suspect]
     Indication: CERVICAL VERTEBRAL FRACTURE
     Dosage: 80 MG PO Q 6HR
     Route: 048

REACTIONS (2)
  - DYSPHAGIA [None]
  - PHARMACEUTICAL PRODUCT COMPLAINT [None]
